FAERS Safety Report 19995297 (Version 2)
Quarter: 2021Q4

REPORT INFORMATION
  Report Type: Report from Study
  Country: US (occurrence: US)
  Receive Date: 20211025
  Receipt Date: 20211210
  Transmission Date: 20220303
  Serious: Yes (Other)
  Sender: FDA-Public Use
  Company Number: US-TEVA-2021-US-1967960

PATIENT
  Age: 54 Year
  Sex: Female

DRUGS (3)
  1. COPAXONE [Suspect]
     Active Substance: GLATIRAMER ACETATE
     Dosage: FORM STRENGTH-UNKNOWN
     Route: 065
     Dates: end: 202111
  2. GLATIRAMER ACETATE [Suspect]
     Active Substance: GLATIRAMER ACETATE
     Indication: Multiple sclerosis
     Route: 065
  3. TYLENOL [Suspect]
     Active Substance: ACETAMINOPHEN
     Route: 065

REACTIONS (14)
  - Loss of consciousness [Unknown]
  - Hip arthroplasty [Unknown]
  - Brain injury [Unknown]
  - Road traffic accident [Unknown]
  - Erythema [Unknown]
  - Dyspnoea [Unknown]
  - Arthralgia [Unknown]
  - Mobility decreased [Unknown]
  - Fatigue [Unknown]
  - Walking aid user [Unknown]
  - Somnolence [Unknown]
  - Injection site reaction [Not Recovered/Not Resolved]
  - Flight of ideas [Unknown]
  - Drug hypersensitivity [Unknown]

NARRATIVE: CASE EVENT DATE: 20160101
